FAERS Safety Report 5563958-3 (Version None)
Quarter: 2007Q4

REPORT INFORMATION
  Report Type: 
  Country: None (occurrence: None)
  Receive Date: 20071217
  Receipt Date: 20071210
  Transmission Date: 20080405
  Serious: Yes (Other)
  Sender: FDA-Public Use
  Company Number: MX-ELI_LILLY_AND_COMPANY-MX200711003066

PATIENT
  Age: 50 Year
  Sex: Female

DRUGS (5)
  1. HUMALOG MIX 75/25 [Suspect]
     Indication: DIABETES MELLITUS
     Dosage: 35 IU, EACH MORNING
     Route: 065
     Dates: start: 20071001
  2. HUMALOG MIX 75/25 [Suspect]
     Dosage: 15 IU, EACH EVENING
     Route: 065
     Dates: start: 20071001
  3. LOSARTAN POTASSIUM [Concomitant]
     Dosage: UNK, UNKNOWN
     Route: 065
  4. GEMFIBROZIL [Concomitant]
     Dosage: UNK, UNKNOWN
     Route: 065
  5. LANTUS [Concomitant]
     Indication: DIABETES MELLITUS
     Dosage: UNK, UNKNOWN
     Route: 065

REACTIONS (1)
  - CYANOSIS CENTRAL [None]
